FAERS Safety Report 15451443 (Version 2)
Quarter: 2018Q4

REPORT INFORMATION
  Report Type: Spontaneous
  Country: BE (occurrence: BE)
  Receive Date: 20181001
  Receipt Date: 20181005
  Transmission Date: 20190204
  Serious: Yes (Other)
  Sender: FDA-Public Use
  Company Number: PHHY2016BE097476

PATIENT
  Age: 57 Year
  Sex: Male

DRUGS (10)
  1. CISPLATIN. [Suspect]
     Active Substance: CISPLATIN
     Dosage: 75 MG/M2, (ON DAY 1)
     Route: 065
     Dates: start: 20060614, end: 20060916
  2. 5 FLUORO URACIL [Suspect]
     Active Substance: FLUOROURACIL
     Dosage: 750 MG/M2, UNK (ON DAYS 1-5)
     Route: 065
     Dates: start: 20060614, end: 20060916
  3. DOCETAXEL. [Suspect]
     Active Substance: DOCETAXEL
     Indication: OROPHARYNGEAL CANCER RECURRENT
     Dosage: 75 MG/M2, (ON DAY 1)
     Route: 065
     Dates: start: 20060614, end: 20060916
  4. CETUXIMAB. [Suspect]
     Active Substance: CETUXIMAB
     Dosage: 250 MG/M2, 5 CYCLES (ON DAYS 1, 8 AND 15)
     Route: 065
     Dates: start: 20060614, end: 20060916
  5. CETUXIMAB. [Suspect]
     Active Substance: CETUXIMAB
     Indication: SQUAMOUS CELL CARCINOMA OF HEAD AND NECK
     Dosage: 400 MG/M2, UNK
     Route: 065
     Dates: start: 20050509, end: 20050906
  6. 5 FLUORO URACIL [Suspect]
     Active Substance: FLUOROURACIL
     Indication: SQUAMOUS CELL CARCINOMA OF HEAD AND NECK
     Dosage: 1000 MG/M2,  ON DAY 4
     Route: 065
     Dates: start: 20050509, end: 20050906
  7. DEXAMETHASONE. [Concomitant]
     Active Substance: DEXAMETHASONE
     Indication: PREMEDICATION
     Dosage: 8 MG, 2X/DAY
     Route: 048
  8. CIPROFLOXACIN. [Concomitant]
     Active Substance: CIPROFLOXACIN
     Indication: ANTIBIOTIC PROPHYLAXIS
     Dosage: 500 MG, BID (1000 MILLIGRAM DAILY; 500MG EVERY 12 HOURS ON DAYS 5-15)
     Route: 065
  9. CISPLATIN. [Suspect]
     Active Substance: CISPLATIN
     Indication: SQUAMOUS CELL CARCINOMA OF HEAD AND NECK
     Dosage: 100 MG/M2, ON DAY 1
     Route: 065
  10. CETUXIMAB. [Suspect]
     Active Substance: CETUXIMAB
     Indication: OROPHARYNGEAL CANCER RECURRENT
     Dosage: 250 MG/M2, UNK
     Route: 065
     Dates: start: 20050913, end: 20060503

REACTIONS (14)
  - Disease progression [Unknown]
  - Rash [Unknown]
  - Dizziness [Unknown]
  - Stomatitis [Unknown]
  - Infection [Unknown]
  - Nausea [Unknown]
  - Febrile neutropenia [Unknown]
  - Peripheral sensory neuropathy [Not Recovered/Not Resolved]
  - Therapeutic response decreased [Unknown]
  - Squamous cell carcinoma of head and neck [Unknown]
  - Decreased appetite [Unknown]
  - Constipation [Unknown]
  - Deafness [Unknown]
  - Fatigue [Unknown]
